FAERS Safety Report 19699153 (Version 1)
Quarter: 2021Q3

REPORT INFORMATION
  Report Type: Not Available
  Country: None (occurrence: None)
  Receive Date: 20210813
  Receipt Date: 20210813
  Transmission Date: 20211014
  Serious: No
  Sender: FDA-Public Use
  Company Number: US-AKORN-170450

PATIENT
  Age: 42 Year
  Sex: Male

DRUGS (1)
  1. MYORISAN [Suspect]
     Active Substance: ISOTRETINOIN

REACTIONS (5)
  - Chromaturia [None]
  - Nausea [None]
  - Vomiting [None]
  - Muscle spasms [None]
  - Diarrhoea [None]
